FAERS Safety Report 21445650 (Version 1)
Quarter: 2022Q4

REPORT INFORMATION
  Report Type: Spontaneous
  Country: US (occurrence: US)
  Receive Date: 20221012
  Receipt Date: 20221012
  Transmission Date: 20230113
  Serious: Yes (Other)
  Sender: FDA-Public Use
  Company Number: US-SA-SAC20221011000553

PATIENT
  Age: 23 Year
  Sex: Male

DRUGS (8)
  1. ELOCTATE [Suspect]
     Active Substance: EFMOROCTOCOG ALFA
     Indication: Factor VIII deficiency
     Dosage: 1398 UNITS (+/-10%), PRN EVERY 24 HOURS
     Route: 042
  2. ELOCTATE [Suspect]
     Active Substance: EFMOROCTOCOG ALFA
     Indication: Factor VIII deficiency
     Dosage: 1398 UNITS (+/-10%), PRN EVERY 24 HOURS
     Route: 042
  3. ELOCTATE [Suspect]
     Active Substance: EFMOROCTOCOG ALFA
     Indication: Haemarthrosis
     Dosage: 2795 UNITS (+/-10%), BIW
     Route: 042
  4. ELOCTATE [Suspect]
     Active Substance: EFMOROCTOCOG ALFA
     Indication: Haemarthrosis
     Dosage: 2795 UNITS (+/-10%), BIW
     Route: 042
  5. ELOCTATE [Suspect]
     Active Substance: EFMOROCTOCOG ALFA
     Indication: Soft tissue haemorrhage
     Dosage: 2795 U, PRN (EVERY 24 HOURS AS NEEDED
     Route: 042
  6. ELOCTATE [Suspect]
     Active Substance: EFMOROCTOCOG ALFA
     Indication: Soft tissue haemorrhage
     Dosage: 2795 U, PRN (EVERY 24 HOURS AS NEEDED
     Route: 042
  7. ELOCTATE [Suspect]
     Active Substance: EFMOROCTOCOG ALFA
     Indication: Soft tissue haemorrhage
  8. ELOCTATE [Suspect]
     Active Substance: EFMOROCTOCOG ALFA
     Indication: Soft tissue haemorrhage

REACTIONS (1)
  - Haemorrhage [Recovered/Resolved]
